FAERS Safety Report 6369344-0 (Version None)
Quarter: 2009Q3

REPORT INFORMATION
  Report Type: 
  Country: None (occurrence: None)
  Receive Date: 20090903
  Receipt Date: 20090824
  Transmission Date: 20100115
  Serious: Yes (Hospitalization)
  Sender: FDA-Public Use
  Company Number: THYM-1001007

PATIENT
  Age: 40 Year
  Sex: Male
  Weight: 80 kg

DRUGS (10)
  1. THYMOGLOBULIN [Suspect]
     Indication: APLASTIC ANAEMIA
     Dosage: 315 MG, QD, INTRAVENOUS
     Route: 042
     Dates: start: 20090407, end: 20090411
  2. STEROIDS [Concomitant]
  3. ANTIHISTAMINES [Concomitant]
  4. PARACETAMOL (PARACETAMOL) [Concomitant]
  5. PREDNISOLONE [Concomitant]
  6. CLEMASTINE FUMARATE [Concomitant]
  7. TAGAMET [Concomitant]
  8. SANDIMMUNE [Concomitant]
  9. ACYCLOVIR [Concomitant]
  10. COTRIM FORTE EU RHO (SULFAMETHOXAZOLE, TRIMETHOPRIM) [Concomitant]

REACTIONS (5)
  - C-REACTIVE PROTEIN INCREASED [None]
  - CYTOKINE RELEASE SYNDROME [None]
  - DYSPNOEA [None]
  - PROCALCITONIN INCREASED [None]
  - TACHYCARDIA [None]
